FAERS Safety Report 8429506 (Version 3)
Quarter: 2013Q3

REPORT INFORMATION
  Report Type: Report from Study
  Country: DE (occurrence: DE)
  Receive Date: 20120227
  Receipt Date: 20130905
  Transmission Date: 20140515
  Serious: Yes (Hospitalization)
  Sender: FDA-Public Use
  Company Number: PHHO2012DE003135

PATIENT
  Sex: 0

DRUGS (5)
  1. BASILIXIMAB [Suspect]
     Indication: RENAL TRANSPLANT
     Dosage: UNK
     Route: 048
     Dates: start: 20101209, end: 20101213
  2. MYCOPHENOLATE MOFETIL [Suspect]
     Indication: RENAL TRANSPLANT
     Dosage: 500 MG, BID
     Route: 048
     Dates: start: 20101209, end: 20110919
  3. TACROLIMUS [Suspect]
     Indication: RENAL TRANSPLANT
     Dosage: 7 MG, QD
     Route: 048
     Dates: start: 20101209, end: 20110919
  4. TACROLIMUS [Suspect]
     Dosage: 2 MG, QD
     Route: 048
     Dates: start: 20110921
  5. PREDNISOLONE [Concomitant]
     Indication: RENAL TRANSPLANT
     Dosage: 5 MG, QD
     Dates: start: 20101209

REACTIONS (3)
  - Adenocarcinoma [Not Recovered/Not Resolved]
  - Azotaemia [Recovered/Resolved with Sequelae]
  - Pleural effusion [Recovered/Resolved with Sequelae]
